FAERS Safety Report 4600004-X (Version None)
Quarter: 2005Q1

REPORT INFORMATION
  Report Type: 
  Country: None (occurrence: None)
  Receive Date: 20050307
  Receipt Date: 20030930
  Transmission Date: 20050727
  Serious: Yes (Hospitalization, Other)
  Sender: FDA-Public Use
  Company Number: PHNU2003DE03552

PATIENT
  Age: 61 Year
  Sex: Male
  Weight: 67 kg

DRUGS (11)
  1. CLOZARIL [Suspect]
     Indication: PSYCHOTIC DISORDER
     Route: 048
  2. CLOZARIL [Suspect]
     Dosage: 400 MG, BID
     Route: 048
     Dates: start: 19870101, end: 20030801
  3. CLOZARIL [Suspect]
     Dosage: 300 MG, BID
     Route: 048
     Dates: start: 20030801
  4. CIPROFLOXACIN HCL [Suspect]
     Indication: TRACHEOBRONCHITIS
     Dosage: 500 MG, BID
     Route: 048
     Dates: start: 20030801, end: 20030801
  5. SOLIAN [Concomitant]
     Dosage: 300 MG, BID
     Route: 048
  6. ATOSIL [Concomitant]
     Dosage: 50 MG, TID
     Route: 048
  7. TAVOR [Concomitant]
     Dosage: 1 MG, BID
     Route: 048
  8. IRON [Concomitant]
     Route: 065
  9. ESPUMISAN [Concomitant]
     Route: 048
  10. SIMETHICONE [Concomitant]
     Route: 048
  11. LACTULOSE [Concomitant]
     Route: 048

REACTIONS (18)
  - ALANINE AMINOTRANSFERASE INCREASED [None]
  - ASPARTATE AMINOTRANSFERASE INCREASED [None]
  - BLOOD GLUCOSE INCREASED [None]
  - C-REACTIVE PROTEIN INCREASED [None]
  - CONJUNCTIVITIS [None]
  - DRUG INTERACTION [None]
  - DRUG LEVEL INCREASED [None]
  - HAEMATOCRIT DECREASED [None]
  - HAEMOGLOBIN DECREASED [None]
  - LEUKOCYTOSIS [None]
  - LYMPHOCYTE PERCENTAGE DECREASED [None]
  - NEUTROPHIL PERCENTAGE INCREASED [None]
  - PLATELET COUNT DECREASED [None]
  - PNEUMONIA [None]
  - PSYCHOTIC DISORDER [None]
  - RED BLOOD CELL COUNT DECREASED [None]
  - TRACHEOBRONCHITIS [None]
  - WHITE BLOOD CELL COUNT INCREASED [None]
